FAERS Safety Report 16237826 (Version 1)
Quarter: 2019Q2

REPORT INFORMATION
  Report Type: Spontaneous
  Country: US (occurrence: US)
  Receive Date: 20190321
  Receipt Date: 20190321
  Transmission Date: 20190711
  Serious: No
  Sender: FDA-Public Use
  Company Number: None

PATIENT
  Age: 56 Year
  Sex: Female

DRUGS (1)
  1. FORTEO [Suspect]
     Active Substance: TERIPARATIDE
     Indication: OSTEOPOROSIS
     Dosage: OTHER STRENGTH:250MCG/ML; UNDER THE SKIN?
     Route: 058
     Dates: start: 20180207

REACTIONS (2)
  - Increased tendency to bruise [None]
  - Impaired healing [None]

NARRATIVE: CASE EVENT DATE: 20180627
